FAERS Safety Report 5892889-4 (Version None)
Quarter: 2008Q3

REPORT INFORMATION
  Report Type: 
  Country: None (occurrence: None)
  Receive Date: 20080923
  Receipt Date: 20080915
  Transmission Date: 20090109
  Serious: No
  Sender: FDA-Public Use
  Company Number: US-BAYER-US-2007-039387

PATIENT
  Age: 32 Year
  Sex: Female
  Weight: 66 kg

DRUGS (2)
  1. MIRENA [Suspect]
     Indication: CONTRACEPTION
     Route: 015
     Dates: start: 20070914
  2. IRON [Concomitant]

REACTIONS (9)
  - ABDOMINAL PAIN [None]
  - BLOOD PRESSURE DECREASED [None]
  - DIZZINESS [None]
  - DRUG EXPOSURE DURING PREGNANCY [None]
  - IUCD COMPLICATION [None]
  - MEDICATION ERROR [None]
  - NAUSEA [None]
  - PROCEDURAL PAIN [None]
  - UPPER RESPIRATORY TRACT INFECTION [None]
